FAERS Safety Report 5005021-6 (Version None)
Quarter: 2006Q2

REPORT INFORMATION
  Report Type: 
  Country: None (occurrence: None)
  Receive Date: 20060512
  Receipt Date: 20060504
  Transmission Date: 20061013
  Serious: Yes (Life-Threatening, Disabling)
  Sender: FDA-Public Use
  Company Number: 2006060609

PATIENT
  Age: 70 Year
  Sex: Female
  Weight: 86.9 kg

DRUGS (9)
  1. LYRICA [Suspect]
     Indication: DIABETIC NEUROPATHY
     Dosage: 75 MG (75 MG, 1 IN 1 D), ORAL
     Route: 048
     Dates: start: 20060201, end: 20060330
  2. WARFARIN (WARFARIN) [Suspect]
     Indication: ATRIAL FIBRILLATION
     Dates: start: 19940101
  3. ATORVASTATIN CALCIUM [Concomitant]
  4. CITALOPRAM HYDROBROMIDE [Concomitant]
  5. METFORMIN [Concomitant]
  6. LANSOPRAZOLE [Concomitant]
  7. PERINDOPRIL (PERINDOPRIL) [Concomitant]
  8. VITAMIN B COMPLEX CAP [Concomitant]
  9. SPIRONOLACTONE (SPRONOLACTONE) [Concomitant]

REACTIONS (4)
  - BLOOD PRESSURE INCREASED [None]
  - DRUG INTERACTION [None]
  - DYSPNOEA [None]
  - INTERNATIONAL NORMALISED RATIO INCREASED [None]
